FAERS Safety Report 5032114-X (Version None)
Quarter: 2006Q2

REPORT INFORMATION
  Report Type: 
  Country: None (occurrence: None)
  Receive Date: 20060619
  Receipt Date: 20060609
  Transmission Date: 20061013
  Serious: Yes (Death)
  Sender: FDA-Public Use
  Company Number: 200613162BWH

PATIENT
  Sex: Male

DRUGS (1)
  1. TRASYLOL [Suspect]
     Indication: CARDIAC OPERATION
     Dosage: INTRAVENOUS
     Route: 042

REACTIONS (2)
  - MYOCARDIAL INFARCTION [None]
  - PROCEDURAL COMPLICATION [None]
